FAERS Safety Report 11879999 (Version 1)
Quarter: 2015Q4

REPORT INFORMATION
  Report Type: Spontaneous
  Country: FR (occurrence: FR)
  Receive Date: 20151230
  Receipt Date: 20151230
  Transmission Date: 20160305
  Serious: Yes (Congenital Anomaly)
  Sender: FDA-Public Use
  Company Number: FR-ASTRAZENECA-2015SF30371

PATIENT

DRUGS (2)
  1. SYMBICORT [Suspect]
     Active Substance: BUDESONIDE\FORMOTEROL FUMARATE DIHYDRATE
     Indication: ASPIRIN-EXACERBATED RESPIRATORY DISEASE
     Dosage: 320/9 UG PER DOSE, 1 DF PER DAY
     Route: 064
     Dates: start: 20141001
  2. RHINOCORT [Suspect]
     Active Substance: BUDESONIDE
     Indication: ASPIRIN-EXACERBATED RESPIRATORY DISEASE
     Route: 064
     Dates: start: 20141001

REACTIONS (1)
  - Congenital tricuspid valve atresia [Unknown]

NARRATIVE: CASE EVENT DATE: 2015
